FAERS Safety Report 5710765-4 (Version None)
Quarter: 2008Q2

REPORT INFORMATION
  Report Type: 
  Country: None (occurrence: None)
  Receive Date: 20080418
  Receipt Date: 20080418
  Transmission Date: 20081010
  Serious: No
  Sender: FDA-Public Use
  Company Number: None

PATIENT
  Age: 23 Year
  Sex: Male
  Weight: 82 kg

DRUGS (4)
  1. HUMATE-P [Suspect]
     Indication: LIMB INJURY
     Dosage: 4100 IU VWF: RCO ONE TIME STAT IV
     Route: 042
     Dates: start: 20080415, end: 20080415
  2. HUMATE-P [Suspect]
     Indication: VON WILLEBRAND'S DISEASE
     Dosage: 4100 IU VWF: RCO ONE TIME STAT IV
     Route: 042
     Dates: start: 20080415, end: 20080415
  3. HUMATE-P [Suspect]
  4. HUMATE-P [Suspect]

REACTIONS (3)
  - ACCIDENTAL OVERDOSE [None]
  - INCORRECT DOSE ADMINISTERED [None]
  - MEDICATION ERROR [None]
